FAERS Safety Report 20918448 (Version 1)
Quarter: 2022Q2

REPORT INFORMATION
  Report Type: Spontaneous
  Country: US (occurrence: US)
  Receive Date: 20220606
  Receipt Date: 20220606
  Transmission Date: 20220721
  Serious: No
  Sender: FDA-Public Use
  Company Number: US-GLAXOSMITHKLINE-US2022087759

PATIENT
  Sex: Female

DRUGS (2)
  1. ZEJULA [Suspect]
     Active Substance: NIRAPARIB
     Indication: Fallopian tube cancer
     Dosage: 200 MG, QD
     Dates: start: 20220317
  2. ZEJULA [Suspect]
     Active Substance: NIRAPARIB
     Dosage: 100 MG, QD
     Dates: start: 20220505

REACTIONS (8)
  - Haemoglobin decreased [Unknown]
  - Gastric disorder [Unknown]
  - Decreased appetite [Unknown]
  - Fatigue [Unknown]
  - Constipation [Recovering/Resolving]
  - Malaise [Unknown]
  - Dyspepsia [Unknown]
  - Asthenia [Unknown]
